FAERS Safety Report 8594057-4 (Version None)
Quarter: 2012Q3

REPORT INFORMATION
  Report Type: 
  Country: None (occurrence: None)
  Receive Date: 20120814
  Receipt Date: 20120806
  Transmission Date: 20120928
  Serious: Yes (Hospitalization)
  Sender: FDA-Public Use
  Company Number: PHHY2012ZA046514

PATIENT
  Sex: Female

DRUGS (6)
  1. PLENISH-K [Concomitant]
  2. PAXIL [Concomitant]
  3. LISINOPRIL [Concomitant]
  4. FUROSEMIDE [Suspect]
     Dosage: 20 MG, DAILY
  5. LEVOTHYROXINE SODIUM [Concomitant]
  6. FUROSEMIDE [Suspect]
     Dosage: 1 DF, BID
     Route: 048

REACTIONS (3)
  - COUGH [None]
  - DYSPNOEA [None]
  - HYPOGLYCAEMIA [None]
